FAERS Safety Report 15691028 (Version 2)
Quarter: 2018Q4

REPORT INFORMATION
  Report Type: Report from Study
  Country: FR (occurrence: FR)
  Receive Date: 20181205
  Receipt Date: 20181212
  Transmission Date: 20190205
  Serious: Yes (Hospitalization, Other)
  Sender: FDA-Public Use
  Company Number: FR-PFIZER INC-2018491909

PATIENT
  Age: 64 Year
  Sex: Female

DRUGS (18)
  1. APROVEL [Concomitant]
     Active Substance: IRBESARTAN
     Indication: HYPERTENSION
     Dosage: UNK
  2. MABTHERA [Suspect]
     Active Substance: RITUXIMAB
     Dosage: 1 DF, CYCLIC
     Route: 042
     Dates: start: 20130425
  3. OGASTORO [Concomitant]
     Active Substance: LANSOPRAZOLE
     Indication: OESOPHAGITIS
     Dosage: 30 MG, 1X/DAY
     Route: 048
     Dates: start: 20150202
  4. PREDNISOLONE. [Suspect]
     Active Substance: PREDNISOLONE
     Dosage: UNK, CYCLIC (6 COURSES, 1 CYCLICAL)
     Route: 048
     Dates: start: 20121213, end: 20130425
  5. OMEPRAZOLE. [Concomitant]
     Active Substance: OMEPRAZOLE
     Indication: GASTROOESOPHAGEAL REFLUX DISEASE
     Dosage: 1 DF, 1X/DAY
     Route: 048
     Dates: start: 201312
  6. ZOPICLONE [Concomitant]
     Active Substance: ZOPICLONE
     Indication: INSOMNIA
     Dosage: UNK
     Dates: start: 20130131
  7. VINCRISTINE SULFATE. [Suspect]
     Active Substance: VINCRISTINE SULFATE
     Indication: B-CELL LYMPHOMA
     Dosage: UNK
     Dates: start: 20121213, end: 20130425
  8. BISOPROLOL [Concomitant]
     Active Substance: BISOPROLOL
     Indication: HYPERTENSION
     Dosage: 5 MG, 1X/DAY
     Route: 048
     Dates: start: 20140801
  9. ULCAR [SUCRALFATE] [Concomitant]
     Indication: OESOPHAGITIS
     Dosage: UNK
     Dates: start: 20150202, end: 20150308
  10. TAHOR [Concomitant]
     Active Substance: ATORVASTATIN CALCIUM
     Indication: HYPERCHOLESTEROLAEMIA
     Dosage: 20 MG, 1X/DAY
     Route: 048
  11. PARACETAMOL [Suspect]
     Active Substance: ACETAMINOPHEN
     Dosage: 500 MG, ONCE EVERY 2 MONTHS
     Route: 048
     Dates: start: 20150209, end: 20150209
  12. PREDNISOLONE. [Suspect]
     Active Substance: PREDNISOLONE
     Indication: B-CELL LYMPHOMA
     Dosage: 100 MG, ONCE EVERY 2 MONTHS
     Route: 048
     Dates: start: 20150209, end: 20150209
  13. ACETYLLEUCINE [Concomitant]
     Active Substance: ACETYLLEUCINE
     Indication: VERTIGO
     Dosage: UNK
     Dates: start: 20131105
  14. MABTHERA [Suspect]
     Active Substance: RITUXIMAB
     Dosage: 620 MG, CYCLIC (1IN 1 CYCLICAL, EVERY 2MONTHS)
     Route: 042
     Dates: start: 20130611, end: 20150209
  15. POLARAMINE [Suspect]
     Active Substance: DEXCHLORPHENIRAMINE MALEATE
     Dosage: 1 DF, CYCLIC (EVERY 2 MONTHS)
     Route: 041
     Dates: start: 20150209, end: 20150209
  16. UROMITEXAN [Concomitant]
     Active Substance: MESNA
     Dosage: UNK
     Dates: start: 20121213
  17. MABTHERA [Suspect]
     Active Substance: RITUXIMAB
     Indication: B-CELL LYMPHOMA
     Dosage: 620 MG, ONCE EVERY 2 MONTHS (6 COURSE)
     Route: 042
     Dates: start: 20121213
  18. ZOPHREN [ONDANSETRON] [Concomitant]
     Indication: PROPHYLAXIS OF NAUSEA AND VOMITING
     Dosage: UNK
     Dates: start: 20121213

REACTIONS (1)
  - Transient ischaemic attack [Recovered/Resolved]

NARRATIVE: CASE EVENT DATE: 20150313
